FAERS Safety Report 21607333 (Version 3)
Quarter: 2023Q1

REPORT INFORMATION
  Report Type: Report from Study
  Country: BR (occurrence: BR)
  Receive Date: 20221117
  Receipt Date: 20230210
  Transmission Date: 20230417
  Serious: Yes (Other)
  Sender: FDA-Public Use
  Company Number: BR-JNJFOC-20221034910

PATIENT
  Age: 45 Year
  Sex: Female
  Weight: 70.4 kg

DRUGS (8)
  1. INFLIXIMAB [Suspect]
     Active Substance: INFLIXIMAB
     Indication: Crohn^s disease
     Dosage: WEEKS 0, 2 AND 15 AND EVERY 8 WEEKS
     Route: 041
     Dates: start: 20201126, end: 202207
  2. REMICADE [Suspect]
     Active Substance: INFLIXIMAB
     Indication: Crohn^s disease
     Route: 041
     Dates: start: 20201126, end: 202206
  3. REMICADE [Suspect]
     Active Substance: INFLIXIMAB
     Route: 041
     Dates: start: 20221103
  4. SULFASALAZINE [Concomitant]
     Active Substance: SULFASALAZINE
  5. ATENOLOL [Concomitant]
     Active Substance: ATENOLOL
  6. DIPHENHYDRAMINE [Concomitant]
     Active Substance: DIPHENHYDRAMINE
  7. CORTISONE [Concomitant]
     Active Substance: CORTISONE
  8. DIPHENHYDRAMINE [Concomitant]
     Active Substance: DIPHENHYDRAMINE

REACTIONS (6)
  - Drug hypersensitivity [Recovering/Resolving]
  - Lupus-like syndrome [Unknown]
  - Infusion related reaction [Recovering/Resolving]
  - Anaphylactic reaction [Unknown]
  - Psoriasis [Unknown]
  - Off label use [Unknown]

NARRATIVE: CASE EVENT DATE: 20210101
